FAERS Safety Report 8739645 (Version 3)
Quarter: 2012Q4

REPORT INFORMATION
  Report Type: Report from Study
  Country: CA (occurrence: CA)
  Receive Date: 20120823
  Receipt Date: 20121011
  Transmission Date: 20130627
  Serious: Yes (Other)
  Sender: FDA-Public Use
  Company Number: CA-ROCHE-1103896

PATIENT
  Age: 63 None
  Sex: Female

DRUGS (8)
  1. MABTHERA [Suspect]
     Indication: RHEUMATOID ARTHRITIS
     Route: 042
     Dates: start: 2010
  2. PREDNISONE [Concomitant]
  3. CELEBREX [Concomitant]
  4. SYNTHROID [Concomitant]
  5. DIPHENHYDRAMINE HCL [Concomitant]
     Indication: PREMEDICATION
     Route: 048
     Dates: start: 20120802, end: 20120802
  6. ACETAMINOPHEN [Concomitant]
     Indication: PREMEDICATION
     Route: 048
     Dates: start: 20120802, end: 20120802
  7. METHYLPREDNISOLONE [Concomitant]
     Indication: PREMEDICATION
     Route: 042
     Dates: start: 20120802, end: 20120802
  8. RANITIDINE [Concomitant]

REACTIONS (3)
  - Pelvic neoplasm [Not Recovered/Not Resolved]
  - Ovarian cancer [Not Recovered/Not Resolved]
  - Pain [Not Recovered/Not Resolved]
